FAERS Safety Report 24380820 (Version 1)
Quarter: 2024Q3

REPORT INFORMATION
  Report Type: Spontaneous
  Country: CZ (occurrence: CZ)
  Receive Date: 20240930
  Receipt Date: 20240930
  Transmission Date: 20241016
  Serious: Yes (Other)
  Sender: PFIZER
  Company Number: CZ-PFIZER INC-202400266286

PATIENT
  Age: 43 Year
  Sex: Male

DRUGS (1)
  1. CIBINQO [Suspect]
     Active Substance: ABROCITINIB
     Indication: Dermatitis atopic
     Dosage: 200 MG

REACTIONS (3)
  - Blindness [Unknown]
  - Visual impairment [Unknown]
  - Arthralgia [Unknown]
